FAERS Safety Report 10038034 (Version 2)
Quarter: 2014Q2

REPORT INFORMATION
  Report Type: Spontaneous
  Country: FR (occurrence: FR)
  Receive Date: 20140326
  Receipt Date: 20140404
  Transmission Date: 20141212
  Serious: Yes (Hospitalization, Other)
  Sender: FDA-Public Use
  Company Number: FR-009507513-1403FRA007833

PATIENT
  Age: 65 Year
  Sex: Female

DRUGS (9)
  1. EMEND [Suspect]
     Dosage: UNK
     Route: 048
     Dates: start: 20130308, end: 20130523
  2. EMEND [Suspect]
     Dosage: UNK
  3. TAXOL [Suspect]
     Dosage: UNK
     Route: 042
     Dates: start: 20130308, end: 20130521
  4. CARBOPLATIN [Suspect]
     Dosage: UNK
     Route: 042
     Dates: start: 20130308, end: 20130521
  5. ONDANSETRON [Suspect]
     Dosage: UNK
     Route: 048
     Dates: start: 20130308, end: 20130521
  6. SOLU-MEDROL [Suspect]
     Dosage: UNK
     Route: 042
     Dates: start: 20130308, end: 20130521
  7. AVASTIN (BEVACIZUMAB) [Suspect]
     Dosage: UNK UNK, ONCE
     Route: 042
     Dates: start: 20130402, end: 20130402
  8. AVASTIN (BEVACIZUMAB) [Suspect]
     Dosage: UNK UNK, ONCE
     Route: 042
     Dates: start: 20130423, end: 20130423
  9. AVASTIN (BEVACIZUMAB) [Suspect]
     Dosage: UNK UNK, ONCE
     Route: 042
     Dates: start: 20130521, end: 20130521

REACTIONS (6)
  - Dermatomyositis [Unknown]
  - Blood creatine phosphokinase increased [Recovered/Resolved]
  - Lymphopenia [Unknown]
  - Dysphagia [Unknown]
  - Aspartate aminotransferase increased [Unknown]
  - Myalgia [Unknown]
